FAERS Safety Report 6313272-3 (Version None)
Quarter: 2009Q3

REPORT INFORMATION
  Report Type: 
  Country: None (occurrence: None)
  Receive Date: 20090818
  Receipt Date: 20090810
  Transmission Date: 20100115
  Serious: Yes (Congenital Anomaly)
  Sender: FDA-Public Use
  Company Number: A0700190A

PATIENT
  Sex: Female

DRUGS (6)
  1. PAXIL [Suspect]
     Indication: DEPRESSION
     Dosage: 20MG PER DAY
     Dates: start: 19960101, end: 20000101
  2. BENTYL [Concomitant]
     Dosage: 10MG BEFORE MEALS
     Dates: start: 19990716
  3. ANUSOL HC [Concomitant]
     Dates: start: 19990716
  4. ACLOVATE [Concomitant]
  5. BENZO-AC 10% #1 OINTMENT [Concomitant]
  6. NIZORAL [Concomitant]

REACTIONS (4)
  - CARDIAC MURMUR [None]
  - DRUG EXPOSURE DURING PREGNANCY [None]
  - HEART DISEASE CONGENITAL [None]
  - MULTIPLE CONGENITAL ABNORMALITIES [None]
